FAERS Safety Report 22650405 (Version 1)
Quarter: 2023Q2

REPORT INFORMATION
  Report Type: Spontaneous
  Country: IT (occurrence: IT)
  Receive Date: 20230628
  Receipt Date: 20230628
  Transmission Date: 20230722
  Serious: Yes (Death, Other)
  Sender: FDA-Public Use
  Company Number: IT-Covis Pharma GmbH-2023COV01383

PATIENT
  Age: 54 Year
  Sex: Female

DRUGS (1)
  1. RILUTEK [Suspect]
     Active Substance: RILUZOLE
     Indication: Amyotrophic lateral sclerosis
     Dosage: 50 MG, BID
     Route: 048
     Dates: start: 20200301, end: 20201215

REACTIONS (2)
  - Pneumonia aspiration [Fatal]
  - Drug ineffective [Unknown]
